FAERS Safety Report 20651956 (Version 2)
Quarter: 2022Q2

REPORT INFORMATION
  Report Type: Spontaneous
  Country: DE (occurrence: DE)
  Receive Date: 20220330
  Receipt Date: 20220428
  Transmission Date: 20220721
  Serious: Yes (Hospitalization, Other)
  Sender: FDA-Public Use
  Company Number: DE-DCGMA-22196869

PATIENT
  Age: 55 Year
  Sex: Female
  Weight: 86 kg

DRUGS (5)
  1. AMLODIPINE [Suspect]
     Active Substance: AMLODIPINE BESYLATE
     Indication: Hypertension
     Dosage: 10 MILLIGRAM, ONCE A DAY (DAILY DOSE: 10 MG MILLGRAM(S) EVERY DAYS 2 SEPARATED DOSES)
     Route: 048
  2. COMIRNATY [Suspect]
     Active Substance: TOZINAMERAN
     Indication: Immunisation
     Dosage: UNK
     Route: 030
     Dates: start: 20211227
  3. ACETAMINOPHEN\ASCORBIC ACID\CAFFEINE\CHLORPHENIRAMINE MALEATE [Suspect]
     Active Substance: ACETAMINOPHEN\ASCORBIC ACID\CAFFEINE\CHLORPHENIRAMINE MALEATE
     Indication: Product used for unknown indication
     Dosage: 2 DOSAGE FORM, ONCE A DAY (DAILY DOSE: 2 DF DOSAGE FORM EVERY DAYS 2 SEPARATED DOSES)
     Route: 048
     Dates: start: 20211227
  4. BISOPROLOL [Concomitant]
     Active Substance: BISOPROLOL
     Indication: Hypertension
     Dosage: 5 MILLIGRAM, ONCE A DAY (DAILY DOSE: 5 MG MILLGRAM(S) EVERY DAYS)
     Route: 048
  5. SALAGEN [Concomitant]
     Active Substance: PILOCARPINE HYDROCHLORIDE
     Indication: Sjogren^s syndrome
     Dosage: 10 MILLIGRAM, ONCE A DAY (DAILY DOSE: 10 MG MILLGRAM(S) EVERY DAYS 2 SEPARATED DOSES)
     Route: 048

REACTIONS (1)
  - Hepatitis toxic [Recovered/Resolved]

NARRATIVE: CASE EVENT DATE: 20220121
